FAERS Safety Report 5518846-5 (Version None)
Quarter: 2007Q4

REPORT INFORMATION
  Report Type: 
  Country: None (occurrence: None)
  Receive Date: 20071113
  Receipt Date: 20071106
  Transmission Date: 20080405
  Serious: Yes (Other)
  Sender: FDA-Public Use
  Company Number: 2007S1000204

PATIENT
  Age: 10 Day
  Sex: Female
  Weight: 1.3 kg

DRUGS (5)
  1. NITRIC OXIDE [Suspect]
     Indication: LUNG DISORDER
     Dosage: 5 PPM; CONT; INH
     Route: 055
     Dates: start: 20071019
  2. NITRIC OXIDE [Suspect]
     Indication: PROPHYLAXIS
     Dosage: 5 PPM; CONT; INH
     Route: 055
     Dates: start: 20071019
  3. THEOPHYLLINE [Concomitant]
  4. VANCOMYCIN HCL [Concomitant]
  5. NETILMICIN SULFATE [Concomitant]

REACTIONS (2)
  - GENERAL PHYSICAL HEALTH DETERIORATION [None]
  - STAPHYLOCOCCAL SEPSIS [None]
